FAERS Safety Report 6684489-3 (Version None)
Quarter: 2010Q2

REPORT INFORMATION
  Report Type: 
  Country: None (occurrence: None)
  Receive Date: 20100416
  Receipt Date: 20100413
  Transmission Date: 20101027
  Serious: Yes (Hospitalization)
  Sender: FDA-Public Use
  Company Number: GB-ROCHE-691426

PATIENT
  Sex: Male
  Weight: 77.7 kg

DRUGS (7)
  1. VALCYTE [Suspect]
     Indication: CYTOMEGALOVIRUS INFECTION
     Route: 048
     Dates: start: 20070718, end: 20070906
  2. AZATHIOPRINE [Concomitant]
     Indication: IMMUNOSUPPRESSANT DRUG THERAPY
     Route: 048
     Dates: start: 20070704, end: 20070906
  3. TACROLIMUS [Concomitant]
     Indication: IMMUNOSUPPRESSANT DRUG THERAPY
     Dosage: 5 MG AM AND 4 MG PM
     Route: 048
     Dates: start: 20070208, end: 20070920
  4. PREDNISOLONE [Concomitant]
     Indication: IMMUNOSUPPRESSANT DRUG THERAPY
     Route: 048
     Dates: start: 20070208, end: 20090118
  5. ASPIRIN [Concomitant]
     Indication: CARDIOVASCULAR EVENT PROPHYLAXIS
     Route: 048
     Dates: start: 20070606
  6. RANITIDINE HCL [Concomitant]
     Indication: PROPHYLAXIS
     Route: 048
     Dates: start: 20070208
  7. AF37702 [Concomitant]
     Indication: APLASIA PURE RED CELL
     Route: 058
     Dates: start: 20060728

REACTIONS (2)
  - LEUKOPENIA [None]
  - PNEUMOCYSTIS JIROVECI PNEUMONIA [None]
